FAERS Safety Report 23813003 (Version 2)
Quarter: 2024Q2

REPORT INFORMATION
  Report Type: Spontaneous
  Country: IT (occurrence: IT)
  Receive Date: 20240503
  Receipt Date: 20240603
  Transmission Date: 20240716
  Serious: Yes (Life-Threatening, Hospitalization)
  Sender: FDA-Public Use
  Company Number: None

PATIENT
  Age: 55 Year
  Sex: Female

DRUGS (2)
  1. LENALIDOMIDE [Suspect]
     Active Substance: LENALIDOMIDE
     Indication: Plasma cell myeloma
  2. IVABRADINE [Suspect]
     Active Substance: IVABRADINE
     Indication: Product used for unknown indication

REACTIONS (6)
  - Myocarditis [Recovering/Resolving]
  - Systolic dysfunction [Recovering/Resolving]
  - Acute myocardial infarction [Recovering/Resolving]
  - Cardiogenic shock [Recovering/Resolving]
  - Ventricular tachycardia [Recovering/Resolving]
  - Cardiotoxicity [Recovering/Resolving]
